FAERS Safety Report 9149955 (Version 1)
Quarter: 2013Q1

REPORT INFORMATION
  Report Type: Spontaneous
  Country: US (occurrence: US)
  Receive Date: 20130308
  Receipt Date: 20130308
  Transmission Date: 20140127
  Serious: No
  Sender: FDA-Public Use
  Company Number: US-ENDO PHARMACEUTICALS INC.-OPCR20120703

PATIENT
  Sex: Male

DRUGS (2)
  1. OPANA ER [Suspect]
     Indication: PAIN
     Route: 048
     Dates: start: 20120420
  2. OPANA ER [Concomitant]
     Indication: PAIN
     Dosage: 40 MG
     Route: 048
     Dates: end: 201204

REACTIONS (7)
  - Gastrooesophageal reflux disease [Not Recovered/Not Resolved]
  - Medication residue present [Not Recovered/Not Resolved]
  - Diarrhoea [Not Recovered/Not Resolved]
  - Abdominal pain upper [Not Recovered/Not Resolved]
  - Hyperhidrosis [Not Recovered/Not Resolved]
  - Dyspepsia [Not Recovered/Not Resolved]
  - Drug ineffective [Not Recovered/Not Resolved]
